FAERS Safety Report 6373122-6 (Version None)
Quarter: 2009Q3

REPORT INFORMATION
  Report Type: 
  Country: None (occurrence: None)
  Receive Date: 20090924
  Receipt Date: 20090611
  Transmission Date: 20100115
  Serious: Yes (Other)
  Sender: FDA-Public Use
  Company Number: US-ASTRAZENECA-2009UW03101

PATIENT
  Sex: Female
  Weight: 63.5 kg

DRUGS (2)
  1. SEROQUEL [Suspect]
     Route: 048
  2. THORAZINE [Concomitant]

REACTIONS (2)
  - DIABETIC KETOACIDOSIS [None]
  - TYPE 1 DIABETES MELLITUS [None]
